FAERS Safety Report 5954170-4 (Version None)
Quarter: 2008Q4

REPORT INFORMATION
  Report Type: 
  Country: None (occurrence: None)
  Receive Date: 20081117
  Receipt Date: 20081106
  Transmission Date: 20090506
  Serious: Yes (Other)
  Sender: FDA-Public Use
  Company Number: JP-JNJFOC-20081102288

PATIENT
  Sex: Male
  Weight: 58 kg

DRUGS (21)
  1. REMICADE [Suspect]
     Route: 042
  2. REMICADE [Suspect]
     Route: 042
  3. REMICADE [Suspect]
     Route: 042
  4. REMICADE [Suspect]
     Route: 042
  5. REMICADE [Suspect]
     Route: 042
  6. REMICADE [Suspect]
     Route: 042
  7. REMICADE [Suspect]
     Route: 042
  8. REMICADE [Suspect]
     Route: 042
  9. REMICADE [Suspect]
     Route: 042
  10. REMICADE [Suspect]
     Indication: RHEUMATOID ARTHRITIS
     Route: 042
  11. RHEUMATREX [Concomitant]
     Route: 048
  12. RHEUMATREX [Concomitant]
     Route: 048
  13. RHEUMATREX [Concomitant]
     Indication: RHEUMATOID ARTHRITIS
     Route: 048
  14. PREDONINE [Concomitant]
     Route: 048
  15. PREDONINE [Concomitant]
     Indication: RHEUMATOID ARTHRITIS
     Route: 048
  16. PREDNISOLONE [Concomitant]
     Indication: RHEUMATOID ARTHRITIS
     Route: 048
  17. BREDININ [Concomitant]
     Indication: RHEUMATOID ARTHRITIS
     Route: 048
  18. INFREE S [Concomitant]
     Indication: RHEUMATOID ARTHRITIS
     Route: 048
  19. GASTROM [Concomitant]
     Route: 048
  20. FOLIAMIN [Concomitant]
     Route: 048
  21. ADRENAL HORMONE PREPARATIONS [Concomitant]
     Indication: RHEUMATOID ARTHRITIS
     Route: 048

REACTIONS (1)
  - PROSTATE CANCER [None]
